FAERS Safety Report 13203986 (Version 1)
Quarter: 2017Q1

REPORT INFORMATION
  Report Type: Spontaneous
  Country: CH (occurrence: CH)
  Receive Date: 20170208
  Receipt Date: 20170208
  Transmission Date: 20170428
  Serious: Yes (Hospitalization)
  Sender: FDA-Public Use
  Company Number: CH-JNJFOC-20170206644

PATIENT
  Age: 85 Year
  Sex: Female
  Weight: 69 kg

DRUGS (11)
  1. ATARAX [Concomitant]
     Active Substance: HYDROXYZINE HYDROCHLORIDE
     Route: 048
     Dates: start: 20110302
  2. XARELTO [Suspect]
     Active Substance: RIVAROXABAN
     Indication: IMMOBILISATION PROLONGED
     Route: 048
     Dates: start: 20160907, end: 20161211
  3. PARACETAMOL [Concomitant]
     Active Substance: ACETAMINOPHEN
     Route: 048
     Dates: start: 20161212
  4. DARIFENACIN. [Concomitant]
     Active Substance: DARIFENACIN
     Route: 048
     Dates: start: 20110302, end: 20161214
  5. AMLODIPINE [Concomitant]
     Active Substance: AMLODIPINE BESYLATE
     Route: 048
     Dates: start: 20110302, end: 20161212
  6. CO-DAFALGAN [Suspect]
     Active Substance: ACETAMINOPHEN\CODEINE PHOSPHATE
     Indication: PRODUCT USED FOR UNKNOWN INDICATION
     Route: 048
     Dates: start: 20160911, end: 20161212
  7. ATENOLOL MEPHA [Concomitant]
     Indication: HYPERTENSION
     Route: 048
     Dates: start: 20110302
  8. CONDROSULF [Suspect]
     Active Substance: SODIUM CHONDROITIN SULFATE
     Indication: PRODUCT USED FOR UNKNOWN INDICATION
     Route: 048
     Dates: end: 20161212
  9. PANTOZOL [Concomitant]
     Active Substance: PANTOPRAZOLE SODIUM
     Route: 048
     Dates: start: 20110302, end: 20161218
  10. DAFALGAN [Concomitant]
     Active Substance: ACETAMINOPHEN
     Route: 048
     Dates: start: 20160911, end: 20161212
  11. CO-ENALAPRIL [Concomitant]
     Active Substance: ENALAPRIL MALEATE\HYDROCHLOROTHIAZIDE
     Indication: HYPERTENSION
     Route: 048
     Dates: start: 20110302, end: 20161212

REACTIONS (3)
  - Pancreatitis [Recovering/Resolving]
  - Abdominal pain upper [Recovered/Resolved]
  - Vomiting [Recovered/Resolved]

NARRATIVE: CASE EVENT DATE: 20161201
